FAERS Safety Report 23922882 (Version 2)
Quarter: 2024Q3

REPORT INFORMATION
  Report Type: Spontaneous
  Country: US (occurrence: US)
  Receive Date: 20240531
  Receipt Date: 20240724
  Transmission Date: 20241017
  Serious: No
  Sender: TAKEDA
  Company Number: US-TAKEDA-2024TUS053833

PATIENT
  Sex: Female

DRUGS (7)
  1. INTUNIV [Suspect]
     Active Substance: GUANFACINE HYDROCHLORIDE
     Indication: Product used for unknown indication
     Dosage: UNK
     Route: 065
     Dates: end: 20240513
  2. DUPIXENT [Suspect]
     Active Substance: DUPILUMAB
     Indication: Eczema
     Dosage: 600 MILLIGRAM, QD
     Route: 058
     Dates: start: 202310
  3. DUPIXENT [Suspect]
     Active Substance: DUPILUMAB
     Dosage: 300 MILLIGRAM, Q2WEEKS
     Route: 065
     Dates: start: 2023
  4. DUPIXENT [Suspect]
     Active Substance: DUPILUMAB
     Dosage: UNK
     Route: 065
     Dates: start: 202402, end: 202403
  5. DUPIXENT [Suspect]
     Active Substance: DUPILUMAB
     Dosage: 600 MILLIGRAM, QD
     Route: 058
     Dates: start: 202403
  6. DUPIXENT [Suspect]
     Active Substance: DUPILUMAB
     Dosage: 300 MILLIGRAM, Q2WEEKS
     Route: 065
     Dates: start: 2024
  7. MUPIROCIN [Concomitant]
     Active Substance: MUPIROCIN
     Dosage: UNK
     Route: 065

REACTIONS (11)
  - Urticaria [Unknown]
  - Eczema [Unknown]
  - Erythema [Unknown]
  - Dry skin [Unknown]
  - Product use issue [Unknown]
  - Insurance issue [Unknown]
  - Anxiety [Unknown]
  - Pruritus [Unknown]
  - Hypersensitivity [Recovering/Resolving]
  - Rash [Unknown]
  - Iodine allergy [Not Recovered/Not Resolved]

NARRATIVE: CASE EVENT DATE: 20240101
